FAERS Safety Report 6923657-X (Version None)
Quarter: 2010Q3

REPORT INFORMATION
  Report Type: 
  Country: None (occurrence: None)
  Receive Date: 20100813
  Receipt Date: 20100805
  Transmission Date: 20110219
  Serious: Yes (Disabling)
  Sender: FDA-Public Use
  Company Number: B0619529A

PATIENT
  Sex: Female

DRUGS (3)
  1. CLINDOXYL [Suspect]
     Indication: ACNE
     Route: 065
     Dates: start: 20090921, end: 20091026
  2. TETRACYCLIN [Concomitant]
     Indication: ACNE
     Dosage: 500MCG TWICE PER DAY
     Route: 065
     Dates: start: 20090921
  3. UNSPECIFIED DRUG [Concomitant]
     Indication: PRODUCT USED FOR UNKNOWN INDICATION
     Route: 065

REACTIONS (5)
  - CONDITION AGGRAVATED [None]
  - ERYTHEMA [None]
  - RASH ERYTHEMATOUS [None]
  - SCAR [None]
  - SKIN ATROPHY [None]
